FAERS Safety Report 5809520-6 (Version None)
Quarter: 2008Q3

REPORT INFORMATION
  Report Type: 
  Country: None (occurrence: None)
  Receive Date: 20080715
  Receipt Date: 20080707
  Transmission Date: 20090109
  Serious: Yes (Hospitalization, Other)
  Sender: FDA-Public Use
  Company Number: US-AMGEN-STX292690

PATIENT
  Sex: Female

DRUGS (2)
  1. ENBREL [Suspect]
     Indication: RHEUMATOID ARTHRITIS
     Route: 058
     Dates: start: 19990901
  2. METHOTREXATE [Concomitant]
     Route: 065

REACTIONS (5)
  - DYSPNOEA [None]
  - HEAD INJURY [None]
  - HEART RATE DECREASED [None]
  - LOSS OF CONSCIOUSNESS [None]
  - THYROID DISORDER [None]
